FAERS Safety Report 6361080-X (Version None)
Quarter: 2009Q3

REPORT INFORMATION
  Report Type: 
  Country: None (occurrence: None)
  Receive Date: 20090918
  Receipt Date: 20090818
  Transmission Date: 20100115
  Serious: No
  Sender: FDA-Public Use
  Company Number: US-BAYER-200930797NA

PATIENT
  Age: 78 Year
  Sex: Male

DRUGS (3)
  1. ULTRAVIST 300 [Suspect]
     Indication: COMPUTERISED TOMOGRAM ABDOMEN
     Dosage: TOTAL DAILY DOSE: 100 ML  UNIT DOSE: 200 ML
     Route: 042
     Dates: start: 20090818, end: 20090818
  2. CHEMOTHERAPY [Concomitant]
  3. BARIUM [Concomitant]
     Route: 048
     Dates: start: 20090818, end: 20090818

REACTIONS (2)
  - NAUSEA [None]
  - VOMITING [None]
